FAERS Safety Report 6300114-5 (Version None)
Quarter: 2009Q3

REPORT INFORMATION
  Report Type: 
  Country: None (occurrence: None)
  Receive Date: 20090805
  Receipt Date: 20090805
  Transmission Date: 20100115
  Serious: Yes (Other)
  Sender: FDA-Public Use
  Company Number: None

PATIENT
  Age: 40 Year
  Sex: Female
  Weight: 63.5036 kg

DRUGS (1)
  1. PRUET DHA  PRUGEN, INC. [Suspect]
     Indication: BREAST FEEDING
     Dosage: 1 TABLET PER DAY PO
     Route: 048
     Dates: start: 20090516, end: 20090804

REACTIONS (3)
  - FACE OEDEMA [None]
  - LIP SWELLING [None]
  - URTICARIA [None]
